FAERS Safety Report 21909012 (Version 1)
Quarter: 2023Q1

REPORT INFORMATION
  Report Type: Spontaneous
  Country: US (occurrence: None)
  Receive Date: 20230124
  Receipt Date: 20230124
  Transmission Date: 20230417
  Serious: Yes (Other)
  Sender: FDA-Public Use
  Company Number: None

PATIENT
  Age: 38 Year
  Sex: Female
  Weight: 102.15 kg

DRUGS (3)
  1. ZYRTEC [Suspect]
     Active Substance: CETIRIZINE HYDROCHLORIDE
     Indication: Seasonal allergy
  2. VITAMINS [Concomitant]
     Active Substance: VITAMINS
  3. PROBIOTICS NOS [Concomitant]
     Active Substance: PROBIOTICS NOS

REACTIONS (3)
  - Pruritus [None]
  - Burning sensation [None]
  - Withdrawal syndrome [None]

NARRATIVE: CASE EVENT DATE: 20230110
